FAERS Safety Report 17739869 (Version 1)
Quarter: 2020Q2

REPORT INFORMATION
  Report Type: Spontaneous
  Country: US (occurrence: US)
  Receive Date: 20200502
  Receipt Date: 20200502
  Transmission Date: 20200714
  Serious: Yes (Other)
  Sender: FDA-Public Use
  Company Number: None

PATIENT
  Age: 55 Year
  Sex: Female
  Weight: 123.75 kg

DRUGS (1)
  1. BUPROPION HCL SR 150 MG TABLET [Suspect]
     Active Substance: BUPROPION HYDROCHLORIDE
     Indication: DEPRESSION
     Dosage: ?          QUANTITY:180 TABLET(S);?
     Route: 048

REACTIONS (3)
  - Tinnitus [None]
  - Product odour abnormal [None]
  - Product substitution issue [None]

NARRATIVE: CASE EVENT DATE: 20200101
